FAERS Safety Report 7392215-8 (Version None)
Quarter: 2011Q2

REPORT INFORMATION
  Report Type: 
  Country: None (occurrence: None)
  Receive Date: 20110404
  Receipt Date: 20110401
  Transmission Date: 20111010
  Serious: Yes (Hospitalization)
  Sender: FDA-Public Use
  Company Number: D0070822A

PATIENT
  Age: 35 Year
  Sex: Male
  Weight: 95 kg

DRUGS (2)
  1. VIANI [Suspect]
     Route: 055
     Dates: start: 20110126, end: 20110215
  2. SALBUTAMOL [Concomitant]
     Route: 055

REACTIONS (4)
  - CARDIAC ARREST [None]
  - VENTRICULAR FIBRILLATION [None]
  - RESUSCITATION [None]
  - DRUG INTERACTION [None]
